FAERS Safety Report 8582671-1 (Version None)
Quarter: 2012Q3

REPORT INFORMATION
  Report Type: 
  Country: None (occurrence: None)
  Receive Date: 20120809
  Receipt Date: 20120806
  Transmission Date: 20120928
  Serious: No
  Sender: FDA-Public Use
  Company Number: US-PFIZER INC-2012125249

PATIENT
  Age: 80 Year
  Sex: Male
  Weight: 77.1 kg

DRUGS (1)
  1. ATORVASTATIN CALCIUM [Suspect]
     Indication: BLOOD CHOLESTEROL INCREASED
     Dosage: 80 MG, 1X/DAY
     Route: 048
     Dates: start: 20120515, end: 20120521

REACTIONS (7)
  - MUSCULOSKELETAL PAIN [None]
  - DYSPHAGIA [None]
  - RHINORRHOEA [None]
  - DIARRHOEA [None]
  - NAUSEA [None]
  - ABDOMINAL DISCOMFORT [None]
  - ARTHRALGIA [None]
